FAERS Safety Report 9288202 (Version 1)
Quarter: 2013Q2

REPORT INFORMATION
  Report Type: Spontaneous
  Country: US (occurrence: US)
  Receive Date: 20130514
  Receipt Date: 20130514
  Transmission Date: 20140414
  Serious: No
  Sender: FDA-Public Use
  Company Number: US-BAYER-2013-059062

PATIENT
  Age: 65 Year
  Sex: Female
  Weight: 63.04 kg

DRUGS (3)
  1. ALEVE LIQUID GELS [Suspect]
     Indication: HEADACHE
     Route: 048
  2. CRESTOR [Concomitant]
  3. ARNICA [Concomitant]

REACTIONS (4)
  - Urticaria [None]
  - Rash [None]
  - Urticaria [Not Recovered/Not Resolved]
  - Eye pruritus [Not Recovered/Not Resolved]
